FAERS Safety Report 23692298 (Version 2)
Quarter: 2024Q2

REPORT INFORMATION
  Report Type: Spontaneous
  Country: JP (occurrence: JP)
  Receive Date: 20240401
  Receipt Date: 20240503
  Transmission Date: 20240715
  Serious: Yes (Hospitalization, Other)
  Sender: FDA-Public Use
  Company Number: JP-OTSUKA-2024_008185

PATIENT
  Age: 6 Decade
  Sex: Female

DRUGS (4)
  1. BUSULFAN [Suspect]
     Active Substance: BUSULFAN
     Indication: Transplant
     Dosage: APPROXIMATELY 40% OF THE DOSE
     Route: 041
     Dates: start: 20230707, end: 20230707
  2. BUSULFAN [Suspect]
     Active Substance: BUSULFAN
     Indication: Premedication
     Dosage: 3.2 MG/KG/DAY
     Route: 041
     Dates: start: 20230706, end: 20230706
  3. THIOTEPA [Concomitant]
     Active Substance: THIOTEPA
     Indication: Transplant
     Dosage: 5MG/KG/DAY
     Route: 065
     Dates: start: 20230706, end: 20230706
  4. THIOTEPA [Concomitant]
     Active Substance: THIOTEPA
     Indication: Premedication
     Dosage: APPROXIMATELY 40% OF THE DOSE
     Route: 065
     Dates: start: 20230707, end: 20230707

REACTIONS (1)
  - Drug-induced liver injury [Recovering/Resolving]

NARRATIVE: CASE EVENT DATE: 20230707
